FAERS Safety Report 6959827-4 (Version None)
Quarter: 2010Q3

REPORT INFORMATION
  Report Type: 
  Country: None (occurrence: None)
  Receive Date: 20100823
  Receipt Date: 20100721
  Transmission Date: 20110219
  Serious: No
  Sender: FDA-Public Use
  Company Number: 016190

PATIENT
  Sex: Female
  Weight: 68 kg

DRUGS (8)
  1. CIMZIA [Suspect]
     Indication: CROHN'S DISEASE
     Dosage: (SUBCUTANEOUS)
     Route: 058
     Dates: start: 20090601
  2. POTASSIUM [Concomitant]
  3. MAGNESIUM [Concomitant]
  4. PROTONIX [Concomitant]
  5. ATIVAN [Concomitant]
  6. SYNTHROID [Concomitant]
  7. LEXAPRO [Concomitant]
  8. PREMARIN /01218301/ [Concomitant]

REACTIONS (2)
  - HEADACHE [None]
  - VARICELLA [None]
